FAERS Safety Report 18540312 (Version 1)
Quarter: 2020Q4

REPORT INFORMATION
  Report Type: Spontaneous
  Country: ES (occurrence: ES)
  Receive Date: 20201124
  Receipt Date: 20201124
  Transmission Date: 20210114
  Serious: Yes (Hospitalization, Other)
  Sender: FDA-Public Use
  Company Number: ES-B.I. PHARMACEUTICALS,INC./RIDGEFIELD-2020-BI-062520

PATIENT
  Age: 73 Year
  Sex: Male
  Weight: 70 kg

DRUGS (6)
  1. ATORVASTATINA [ATORVASTATIN] [Concomitant]
     Active Substance: ATORVASTATIN
     Indication: ACUTE MYOCARDIAL INFARCTION
     Dosage: 20 MG DAILY
     Route: 048
     Dates: start: 20191127
  2. LORAZEPAM. [Concomitant]
     Active Substance: LORAZEPAM
     Indication: ANXIETY
     Dosage: 1 MG
     Route: 048
     Dates: start: 20171020
  3. CAFINITRINA [CAFFEINE CITRATE;GLYCERYL TRINITRATE;PHENOBARBITAL] [Concomitant]
     Indication: PAIN
     Dosage: 1 MG/25 MG FREQUENCY: 1, FREQUENCY UNIT: 808
     Route: 060
     Dates: start: 20190423
  4. ADIRO [Suspect]
     Active Substance: ASPIRIN
     Indication: AORTIC ANEURYSM
     Dosage: 100 MG DAILY
     Route: 048
     Dates: start: 20171215
  5. PRADAXA [Suspect]
     Active Substance: DABIGATRAN ETEXILATE MESYLATE
     Indication: ATRIAL FIBRILLATION
     Dosage: 300 MG DAILY (=150 MG/12 H)
     Route: 048
     Dates: start: 20191017, end: 20201028
  6. OMEPRAZOL [OMEPRAZOLE] [Concomitant]
     Active Substance: OMEPRAZOLE
     Indication: ACUTE MYOCARDIAL INFARCTION
     Dosage: 20 MG
     Route: 048
     Dates: start: 20190605

REACTIONS (3)
  - Melaena [Recovered/Resolved]
  - Gastric haemorrhage [Recovered/Resolved]
  - Drug interaction [Unknown]

NARRATIVE: CASE EVENT DATE: 20201028
